FAERS Safety Report 16360161 (Version 4)
Quarter: 2019Q4

REPORT INFORMATION
  Report Type: Report from Study
  Country: None (occurrence: US)
  Receive Date: 20190528
  Receipt Date: 20191024
  Transmission Date: 20200122
  Serious: Yes (Hospitalization, Other)
  Sender: FDA-Public Use
  Company Number: US-ABBVIE-19K-163-2732725-00

PATIENT
  Age: 67 Year
  Sex: Female

DRUGS (4)
  1. CLOBETASOL [Concomitant]
     Active Substance: CLOBETASOL
     Indication: PRODUCT USED FOR UNKNOWN INDICATION
  2. HUMIRA [Suspect]
     Active Substance: ADALIMUMAB
     Dosage: DAY 8
     Route: 058
     Dates: start: 201805, end: 20190414
  3. HUMIRA [Suspect]
     Active Substance: ADALIMUMAB
     Route: 058
     Dates: start: 2019
  4. HUMIRA [Suspect]
     Active Substance: ADALIMUMAB
     Indication: PSORIASIS
     Dosage: DAY 1
     Route: 058
     Dates: start: 201805, end: 201805

REACTIONS (11)
  - Pain in extremity [Recovered/Resolved]
  - Depression [Unknown]
  - Rash [Unknown]
  - Psoriasis [Unknown]
  - Rash pruritic [Not Recovered/Not Resolved]
  - Eye disorder [Not Recovered/Not Resolved]
  - Back pain [Recovering/Resolving]
  - Spinal disorder [Unknown]
  - Pruritus [Recovering/Resolving]
  - Rash erythematous [Not Recovered/Not Resolved]
  - Visual impairment [Not Recovered/Not Resolved]

NARRATIVE: CASE EVENT DATE: 201805
